FAERS Safety Report 6881966-7 (Version None)
Quarter: 2010Q3

REPORT INFORMATION
  Report Type: 
  Country: None (occurrence: None)
  Receive Date: 20100727
  Receipt Date: 20100503
  Transmission Date: 20110219
  Serious: No
  Sender: FDA-Public Use
  Company Number: US-MYLANLABS-2010S1007783

PATIENT
  Age: 51 Year
  Sex: Female
  Weight: 98.88 kg

DRUGS (5)
  1. BUSPIRONE HCL [Suspect]
     Indication: ANXIETY
     Route: 048
  2. LEVOTHYROXINE [Suspect]
     Indication: HYPOTHYROIDISM
     Route: 048
     Dates: start: 20081201, end: 20090701
  3. SYNTHROID [Suspect]
     Indication: HYPOTHYROIDISM
     Route: 048
     Dates: start: 20090701, end: 20100301
  4. SYNTHROID [Suspect]
     Route: 048
     Dates: start: 20100401
  5. LEVOXYL [Suspect]
     Indication: HYPOTHYROIDISM
     Route: 048
     Dates: start: 20100301, end: 20100401

REACTIONS (7)
  - BLOOD PRESSURE INCREASED [None]
  - DIARRHOEA [None]
  - DYSPEPSIA [None]
  - FLUSHING [None]
  - GASTRIC PH DECREASED [None]
  - HEART RATE INCREASED [None]
  - IRRITABLE BOWEL SYNDROME [None]
